FAERS Safety Report 17580858 (Version 4)
Quarter: 2025Q3

REPORT INFORMATION
  Report Type: Spontaneous
  Country: EU (occurrence: EU)
  Receive Date: 20200325
  Receipt Date: 20250702
  Transmission Date: 20251021
  Serious: Yes (Hospitalization, Other)
  Sender: MYLAN
  Company Number: EU-ADIENNEP-2020AD000142

PATIENT
  Sex: Female

DRUGS (10)
  1. TACROLIMUS [Suspect]
     Active Substance: TACROLIMUS
     Indication: Chronic graft versus host disease
  2. EPIRUBICIN [Suspect]
     Active Substance: EPIRUBICIN
     Indication: Chronic graft versus host disease
  3. MYCOPHENOLATE MOFETIL [Suspect]
     Active Substance: MYCOPHENOLATE MOFETIL
     Indication: Chronic graft versus host disease
  4. IMATINIB [Suspect]
     Active Substance: IMATINIB
     Indication: Chronic graft versus host disease
  5. FLUOROURACIL [Suspect]
     Active Substance: FLUOROURACIL
     Indication: Chronic graft versus host disease
  6. BUSULFAN [Suspect]
     Active Substance: BUSULFAN
     Indication: Allogenic stem cell transplantation
  7. FLUDARABINE [Suspect]
     Active Substance: FLUDARABINE PHOSPHATE
     Indication: Allogenic stem cell transplantation
  8. CYCLOSPORINE [Suspect]
     Active Substance: CYCLOSPORINE
     Indication: Chronic graft versus host disease
  9. CYCLOPHOSPHAMIDE [Suspect]
     Active Substance: CYCLOPHOSPHAMIDE
     Indication: Chronic graft versus host disease
  10. THIOTEPA [Suspect]
     Active Substance: THIOTEPA
     Indication: Allogenic stem cell transplantation

REACTIONS (7)
  - Pneumocystis jirovecii pneumonia [Recovered/Resolved]
  - Pneumonia influenzal [Recovered/Resolved]
  - Progressive multifocal leukoencephalopathy [Recovered/Resolved]
  - Human herpesvirus 6 infection [Recovered/Resolved]
  - Respiratory failure [Recovered/Resolved]
  - Chronic graft versus host disease [Unknown]
  - JC virus infection [Recovered/Resolved]

NARRATIVE: CASE EVENT DATE: 20170101
